FAERS Safety Report 16116441 (Version 1)
Quarter: 2019Q1

REPORT INFORMATION
  Report Type: Spontaneous
  Country: FR (occurrence: FR)
  Receive Date: 20190326
  Receipt Date: 20190326
  Transmission Date: 20190418
  Serious: Yes (Other)
  Sender: FDA-Public Use
  Company Number: FR-TEVA-2019-FR-1029240

PATIENT
  Age: 50 Year
  Sex: Female

DRUGS (3)
  1. ZOMIGORO [Concomitant]
     Active Substance: ZOLMITRIPTAN
  2. PROPRANOLOL [Suspect]
     Active Substance: PROPRANOLOL HYDROCHLORIDE
     Indication: MIGRAINE
     Dosage: 20 MILLIGRAM DAILY;
     Route: 048
     Dates: end: 201902
  3. ANDROCUR 50 MG, COMPRIM? [Suspect]
     Active Substance: CYPROTERONE ACETATE
     Indication: DIFFUSE ALOPECIA
     Route: 048
     Dates: end: 201902

REACTIONS (1)
  - Meningioma [Not Recovered/Not Resolved]

NARRATIVE: CASE EVENT DATE: 20190209
